FAERS Safety Report 6172512-4 (Version None)
Quarter: 2009Q2

REPORT INFORMATION
  Report Type: 
  Country: None (occurrence: None)
  Receive Date: 20090429
  Receipt Date: 20090423
  Transmission Date: 20091009
  Serious: Yes (Hospitalization)
  Sender: FDA-Public Use
  Company Number: US-GENENTECH-277925

PATIENT
  Sex: Female
  Weight: 73.5 kg

DRUGS (14)
  1. BEVACIZUMAB [Suspect]
     Indication: BREAST CANCER
     Dosage: 10 MG/KG, UNK
     Route: 042
     Dates: start: 20090127
  2. ABRAXANE [Suspect]
     Indication: BREAST CANCER
     Dosage: 144 MG, UNK
  3. ADRIAMYCIN RDF [Suspect]
     Indication: BREAST CANCER
     Dosage: 60 MG/M2, Q2W
     Route: 042
     Dates: start: 20090127
  4. CYTOXAN [Suspect]
     Indication: BREAST CANCER
     Dosage: 600 MG/M2, UNK
     Route: 042
     Dates: start: 20090127
  5. ROZEREM [Concomitant]
     Indication: DRUG USE FOR UNKNOWN INDICATION
     Dosage: 8 MG, PRN
  6. REGLAN [Concomitant]
     Indication: DRUG USE FOR UNKNOWN INDICATION
     Dosage: 10 MG, UNK
  7. OLANZAPINE [Concomitant]
     Indication: DRUG USE FOR UNKNOWN INDICATION
     Dosage: 5 MG, QHS
  8. LEVOXYL [Concomitant]
     Indication: DRUG USE FOR UNKNOWN INDICATION
     Dosage: 125 MG, UNK
  9. NEULASTA [Concomitant]
     Indication: DRUG USE FOR UNKNOWN INDICATION
     Dosage: 6 MG, UNK
     Route: 058
  10. EMEND [Concomitant]
     Indication: DRUG USE FOR UNKNOWN INDICATION
  11. ZOFRAN [Concomitant]
     Indication: DRUG USE FOR UNKNOWN INDICATION
  12. DECADRON [Concomitant]
     Indication: DRUG USE FOR UNKNOWN INDICATION
  13. NEXIUM [Concomitant]
     Indication: DRUG USE FOR UNKNOWN INDICATION
  14. PROTONIX [Concomitant]
     Indication: DRUG USE FOR UNKNOWN INDICATION

REACTIONS (3)
  - DIARRHOEA [None]
  - FEBRILE NEUTROPENIA [None]
  - MUCOSAL INFLAMMATION [None]
